FAERS Safety Report 5299501-6 (Version None)
Quarter: 2007Q2

REPORT INFORMATION
  Report Type: 
  Country: None (occurrence: None)
  Receive Date: 20070417
  Receipt Date: 20070412
  Transmission Date: 20071010
  Serious: Yes (Death, Life-Threatening, Other)
  Sender: FDA-Public Use
  Company Number: NZ-SANOFI-SYNTHELABO-F01200700478

PATIENT
  Age: 70 Year
  Sex: Male
  Weight: 80 kg

DRUGS (15)
  1. NITROLINGUAL PUMPSPRAY [Concomitant]
     Dosage: UNK
     Route: 065
     Dates: start: 20070222, end: 20070222
  2. ASPIRIN [Concomitant]
     Dosage: UNK
     Route: 065
     Dates: start: 20070221, end: 20070223
  3. METOPROLOL SUCCINATE [Concomitant]
     Dosage: UNK
     Route: 065
     Dates: start: 20070222, end: 20070223
  4. DURIDE [Concomitant]
     Dosage: UNK
     Route: 065
     Dates: start: 20070221, end: 20070223
  5. SIMVASTATIN [Concomitant]
     Dosage: UNK
     Route: 065
     Dates: start: 20070221, end: 20070222
  6. OMEPRAZOLE [Concomitant]
     Dosage: UNK
     Route: 065
     Dates: start: 20070221, end: 20070223
  7. METOCLOPRAMIDE [Concomitant]
     Dosage: UNK
     Route: 065
     Dates: start: 20070222, end: 20070223
  8. MORPHINE [Concomitant]
     Dosage: UNK
     Route: 065
     Dates: start: 20070222, end: 20070223
  9. CILAZAPRIL [Concomitant]
     Dosage: UNK
     Route: 065
     Dates: start: 20070121, end: 20070223
  10. EPTIFIBATIDE [Concomitant]
     Dosage: UNK
     Route: 065
  11. HEPARIN [Concomitant]
     Dosage: UNK
     Route: 065
  12. CANGRELOR/PLACEBO [Suspect]
     Dosage: 6.2 ML
     Route: 040
     Dates: start: 20070222, end: 20070222
  13. CANGRELOR/PLACEBO [Suspect]
     Dosage: 102.9 ML/HOUR
     Route: 042
     Dates: start: 20070222, end: 20070222
  14. CLOPIDOGREL [Suspect]
     Dosage: 4 UNIT
     Route: 048
     Dates: start: 20070222, end: 20070222
  15. CLOPIDOGREL [Suspect]
     Dosage: 4 UNIT
     Route: 048
     Dates: start: 20070222, end: 20070222

REACTIONS (5)
  - CARDIAC ARREST [None]
  - CARDIAC TAMPONADE [None]
  - CORONARY ARTERY PERFORATION [None]
  - ELECTROMECHANICAL DISSOCIATION [None]
  - MYOCARDIAL RUPTURE [None]
